FAERS Safety Report 24955050 (Version 3)
Quarter: 2025Q4

REPORT INFORMATION
  Report Type: Spontaneous
  Country: US (occurrence: US)
  Receive Date: 20250211
  Receipt Date: 20251110
  Transmission Date: 20260118
  Serious: Yes (Other)
  Sender: PFIZER
  Company Number: US-PFIZER INC-PV202300110254

PATIENT
  Age: 80 Year
  Sex: Female

DRUGS (4)
  1. IBRANCE [Suspect]
     Active Substance: PALBOCICLIB
     Indication: Metastases to bone
     Dosage: DAILY DAYS 1-21, OFF 7 DAYS IN A 28 DAY CYCLE
     Route: 048
     Dates: start: 20230612
  2. IBRANCE [Suspect]
     Active Substance: PALBOCICLIB
     Indication: Embolism
     Dosage: TAKE 1 TAB DAILY DAYS 1-21 OFF 7 DAYS IN 28 DAY CYCLE.
     Dates: start: 202306
  3. IBRANCE [Suspect]
     Active Substance: PALBOCICLIB
     Indication: Arterial thrombosis
     Dosage: 100 MG TABLET
  4. LETROZOLE [Concomitant]
     Active Substance: LETROZOLE
     Dosage: 2.5 MG (D1-28, EVERY 28 DAYS)

REACTIONS (4)
  - Neutropenia [Unknown]
  - Hot flush [Unknown]
  - Full blood count decreased [Unknown]
  - Product prescribing error [Unknown]
